FAERS Safety Report 21051047 (Version 2)
Quarter: 2022Q3

REPORT INFORMATION
  Report Type: Spontaneous
  Country: US (occurrence: US)
  Receive Date: 20220707
  Receipt Date: 20220708
  Transmission Date: 20221027
  Serious: No
  Sender: FDA-Public Use
  Company Number: US-Ipsen Biopharmaceuticals, Inc.-2022-18891

PATIENT
  Age: 54 Year
  Sex: Female
  Weight: 63 kg

DRUGS (8)
  1. DYSPORT [Suspect]
     Active Substance: ABOBOTULINUMTOXINA
     Indication: Skin wrinkling
     Dosage: 138 IU
     Route: 030
     Dates: start: 20220623, end: 20220623
  2. DYSPORT [Suspect]
     Active Substance: ABOBOTULINUMTOXINA
     Indication: Skin wrinkling
  3. DYSPORT [Suspect]
     Active Substance: ABOBOTULINUMTOXINA
     Indication: Skin wrinkling
  4. DYSPORT [Suspect]
     Active Substance: ABOBOTULINUMTOXINA
     Indication: Off label use
  5. HYALURONIC ACID [Suspect]
     Active Substance: HYALURONIC ACID
     Indication: Skin cosmetic procedure
     Dosage: ONE SYRINGE
     Route: 065
     Dates: start: 20220623, end: 20220623
  6. HYALURONIC ACID [Suspect]
     Active Substance: HYALURONIC ACID
     Indication: Skin cosmetic procedure
     Dosage: ONE SYRINGE
     Route: 065
     Dates: start: 20220623, end: 20220623
  7. HYALURONIC ACID\LIDOCAINE [Suspect]
     Active Substance: HYALURONIC ACID\LIDOCAINE
     Indication: Skin cosmetic procedure
     Dosage: ONE SYRINGE
     Route: 065
     Dates: start: 20220623, end: 20220623
  8. HYALURONIC ACID [Suspect]
     Active Substance: HYALURONIC ACID
     Indication: Lip cosmetic procedure
     Dosage: ONE SYRINGE
     Route: 065
     Dates: start: 20220623, end: 20220623

REACTIONS (5)
  - Rash [Not Recovered/Not Resolved]
  - Eye swelling [Not Recovered/Not Resolved]
  - Erythema [Unknown]
  - Urticaria [Not Recovered/Not Resolved]
  - Off label use [Unknown]

NARRATIVE: CASE EVENT DATE: 20220623
